FAERS Safety Report 4430793-9 (Version None)
Quarter: 2004Q3

REPORT INFORMATION
  Report Type: 
  Country: None (occurrence: None)
  Receive Date: 20040823
  Receipt Date: 20040812
  Transmission Date: 20050211
  Serious: Yes (Hospitalization)
  Sender: FDA-Public Use
  Company Number: FR-BRISTOL-MYERS SQUIBB COMPANY-12669446

PATIENT
  Age: 71 Year
  Sex: Male
  Weight: 72 kg

DRUGS (12)
  1. HYDREA [Suspect]
     Indication: ACUTE MYELOID LEUKAEMIA
     Route: 048
     Dates: start: 20040616, end: 20040616
  2. ARACYTINE [Suspect]
     Indication: ACUTE MYELOID LEUKAEMIA
     Route: 042
     Dates: start: 20040617, end: 20040623
  3. BELUSTINE [Suspect]
     Indication: ACUTE MYELOID LEUKAEMIA
     Route: 048
     Dates: start: 20040617, end: 20040617
  4. ZYLORIC [Suspect]
     Route: 048
     Dates: start: 20040616, end: 20040617
  5. FLECAINE [Suspect]
     Route: 048
     Dates: end: 20040627
  6. VALACYCLOVIR HCL [Suspect]
     Route: 048
     Dates: start: 20040616, end: 20040624
  7. LASIX [Concomitant]
     Dates: start: 20040616
  8. HEPARIN [Concomitant]
     Dates: start: 20040616
  9. ZAVEDOS [Concomitant]
     Dates: start: 20040617, end: 20040621
  10. LEXOMIL [Concomitant]
     Dates: start: 20040617, end: 20040623
  11. FASTURTEC [Concomitant]
     Dates: start: 20040618, end: 20040622
  12. REQUIP [Concomitant]
     Dates: end: 20040627

REACTIONS (1)
  - HEPATITIS CHOLESTATIC [None]
